FAERS Safety Report 15679843 (Version 1)
Quarter: 2018Q4

REPORT INFORMATION
  Report Type: Spontaneous
  Country: US (occurrence: US)
  Receive Date: 20181203
  Receipt Date: 20181203
  Transmission Date: 20190205
  Serious: No
  Sender: FDA-Public Use
  Company Number: US-PHARMING-PHAUS2018000768

PATIENT

DRUGS (9)
  1. VITAMIN C [Concomitant]
     Active Substance: ASCORBIC ACID
  2. SODIUM CHLORIDE. [Concomitant]
     Active Substance: SODIUM CHLORIDE
  3. VITAMIN B COMPLEX [Concomitant]
     Active Substance: CYANOCOBALAMIN\DEXPANTHENOL\NIACINAMIDE\PYRIDOXINE HYDROCHLORIDE\RIBOFLAVIN 5^-PHOSPHATE SODIUM\THIAMINE HYDROCHLORIDE\VITAMIN B COMPLEX
  4. BERINERT [Concomitant]
     Active Substance: HUMAN C1-ESTERASE INHIBITOR
  5. RUCONEST [Suspect]
     Active Substance: HUMAN C1-ESTERASE INHIBITOR
     Indication: HEREDITARY ANGIOEDEMA
     Dosage: 4200 IU, AS NEEDED
     Route: 042
     Dates: start: 20180731
  6. EPINEPHRINE. [Concomitant]
     Active Substance: EPINEPHRINE
  7. STERILE WATER [Concomitant]
     Active Substance: WATER
  8. VITAMIN D3 [Concomitant]
     Active Substance: CHOLECALCIFEROL
  9. HEAGARDA [Concomitant]

REACTIONS (2)
  - Maternal exposure during pregnancy [Unknown]
  - Road traffic accident [Recovered/Resolved]

NARRATIVE: CASE EVENT DATE: 201808
